FAERS Safety Report 12517543 (Version 2)
Quarter: 2016Q4

REPORT INFORMATION
  Report Type: Spontaneous
  Country: US (occurrence: US)
  Receive Date: 20160630
  Receipt Date: 20161019
  Transmission Date: 20170207
  Serious: No
  Sender: FDA-Public Use
  Company Number: US-ACTELION-A-US2016-138103

PATIENT
  Age: 80 Year
  Sex: Female

DRUGS (13)
  1. IRBESARTAN. [Concomitant]
     Active Substance: IRBESARTAN
  2. PIOGLITAZONE. [Concomitant]
     Active Substance: PIOGLITAZONE
  3. CALCIUM [Concomitant]
     Active Substance: CALCIUM
  4. UPTRAVI [Suspect]
     Active Substance: SELEXIPAG
     Dosage: 200 MCG, BID
     Route: 048
     Dates: start: 20160606
  5. INDAPAMIDE. [Concomitant]
     Active Substance: INDAPAMIDE
  6. POTASSIUM [Concomitant]
     Active Substance: POTASSIUM
  7. UPTRAVI [Suspect]
     Active Substance: SELEXIPAG
     Dosage: 600 MCG, BID
     Route: 048
     Dates: start: 20160722
  8. BUMETANIDE. [Concomitant]
     Active Substance: BUMETANIDE
  9. DOXAZOSIN [Concomitant]
     Active Substance: DOXAZOSIN\DOXAZOSIN MESYLATE
  10. UPTRAVI [Suspect]
     Active Substance: SELEXIPAG
     Indication: PULMONARY ARTERIAL HYPERTENSION
     Dosage: 400 MCG, BID
     Route: 048
     Dates: start: 20160616, end: 20161005
  11. VENASTAT [Concomitant]
     Active Substance: HORSE CHESTNUT
  12. VITAMIN C [Concomitant]
     Active Substance: ASCORBIC ACID
  13. BYETTA [Concomitant]
     Active Substance: EXENATIDE

REACTIONS (7)
  - Headache [Unknown]
  - Tenderness [Unknown]
  - Flushing [Unknown]
  - Pain in extremity [Unknown]
  - Fatigue [Unknown]
  - Oedema peripheral [Unknown]
  - Myalgia [Unknown]

NARRATIVE: CASE EVENT DATE: 20160728
